FAERS Safety Report 24587206 (Version 1)
Quarter: 2024Q4

REPORT INFORMATION
  Report Type: Report from Study
  Country: CZ (occurrence: CZ)
  Receive Date: 20241107
  Receipt Date: 20241107
  Transmission Date: 20250115
  Serious: Yes (Other)
  Sender: AUROBINDO
  Company Number: CZ-ELI_LILLY_AND_COMPANY-CZ202310018171

PATIENT
  Age: 21 Year
  Sex: Male

DRUGS (9)
  1. OLANZAPINE [Suspect]
     Active Substance: OLANZAPINE
     Indication: Schizophrenia
     Dosage: 15 MILLIGRAM (OLANZAPINE UP TO 15 MG DURING HOSPITALIZATION)
     Route: 065
  2. OLANZAPINE [Suspect]
     Active Substance: OLANZAPINE
     Indication: Obsessive-compulsive disorder
  3. CLONAZEPAM [Concomitant]
     Active Substance: CLONAZEPAM
     Indication: Product used for unknown indication
     Dosage: 0.5 MILLIGRAM, AS NECESSARY (CLONAZEPAM 0.5 MG AD HOC MAX. 3 TIMES A DAY)
     Route: 065
  4. LURASIDONE [Concomitant]
     Active Substance: LURASIDONE
     Indication: Schizophrenia
     Dosage: 148 MILLIGRAM, ONCE A DAY
     Route: 065
  5. LURASIDONE [Concomitant]
     Active Substance: LURASIDONE
     Dosage: 74 MILLIGRAM, ONCE A DAY
     Route: 065
  6. SERTRALINE [Concomitant]
     Active Substance: SERTRALINE HYDROCHLORIDE
     Indication: Obsessive-compulsive disorder
     Dosage: 300 MILLIGRAM, ONCE A DAY
     Route: 065
  7. ARIPIPRAZOLE [Concomitant]
     Active Substance: ARIPIPRAZOLE
     Indication: Schizophrenia
     Dosage: 5 MILLIGRAM, ONCE A DAY
     Route: 065
  8. ARIPIPRAZOLE [Concomitant]
     Active Substance: ARIPIPRAZOLE
     Indication: Akathisia
  9. BREXPIPRAZOLE [Concomitant]
     Active Substance: BREXPIPRAZOLE
     Indication: Schizophrenia
     Dosage: 2 MILLIGRAM
     Route: 065

REACTIONS (2)
  - Liver function test increased [Unknown]
  - Drug ineffective [Unknown]
